FAERS Safety Report 5517816-0 (Version None)
Quarter: 2007Q4

REPORT INFORMATION
  Report Type: 
  Country: None (occurrence: None)
  Receive Date: 20071113
  Receipt Date: 20071105
  Transmission Date: 20080405
  Serious: Yes (Other)
  Sender: FDA-Public Use
  Company Number: 2007SP014995

PATIENT
  Age: 35 Year
  Sex: Female
  Weight: 56.6996 kg

DRUGS (3)
  1. MIRALAX [Suspect]
     Indication: CONSTIPATION
     Dosage: 2 DF; QD; PO, 18 MG; BID; PO
     Route: 048
  2. MIRALAX [Suspect]
     Indication: CONSTIPATION
     Dosage: 2 DF; QD; PO, 18 MG; BID; PO
     Route: 048
     Dates: start: 20051201
  3. GLYCOLAX [Suspect]
     Indication: DRUG USE FOR UNKNOWN INDICATION
     Dosage: PO
     Route: 048

REACTIONS (4)
  - DRUG EXPOSURE DURING PREGNANCY [None]
  - OVERDOSE [None]
  - PREGNANCY [None]
  - TALIPES [None]
